FAERS Safety Report 8721654 (Version 2)
Quarter: 2012Q4

REPORT INFORMATION
  Report Type: 
  Country: US (occurrence: US)
  Receive Date: 20120814
  Receipt Date: 20121204
  Transmission Date: 20130627
  Serious: Yes (Hospitalization)
  Sender: FDA-Public Use
  Company Number: US-BAYER-2012-080231

PATIENT
  Age: 22 Year
  Sex: Female
  Weight: 50 kg

DRUGS (9)
  1. YASMIN [Suspect]
     Indication: ACNE
     Dosage: UNK
     Dates: start: 200907, end: 201007
  2. OCELLA [Suspect]
     Indication: ACNE
     Dosage: UNK
     Dates: start: 200907, end: 201007
  3. YAZ [Suspect]
     Dosage: UNK
  4. ALEVE [Concomitant]
     Indication: CHEST PAIN
     Dosage: UNK
     Dates: start: 20100714
  5. VITAMIN C [Concomitant]
  6. ADVIL [Concomitant]
     Indication: HEADACHE
  7. ADVIL [Concomitant]
     Indication: PAIN NOS
  8. TYLENOL [Concomitant]
  9. PERCOCET [Concomitant]

REACTIONS (7)
  - Pulmonary embolism [Recovered/Resolved]
  - Pain [Recovered/Resolved]
  - Injury [Recovered/Resolved]
  - General physical health deterioration [Recovered/Resolved]
  - Emotional distress [None]
  - Pain [None]
  - Anxiety [None]
